FAERS Safety Report 12082556 (Version 2)
Quarter: 2016Q1

REPORT INFORMATION
  Report Type: Spontaneous
  Country: GB (occurrence: GB)
  Receive Date: 20160217
  Receipt Date: 20160304
  Transmission Date: 20160526
  Serious: Yes (Other)
  Sender: FDA-Public Use
  Company Number: GB-ROCHE-1620367

PATIENT
  Sex: Female

DRUGS (1)
  1. HERCEPTIN [Suspect]
     Active Substance: TRASTUZUMAB
     Indication: PRODUCT USED FOR UNKNOWN INDICATION
     Dosage: CYCLE 11
     Route: 058

REACTIONS (22)
  - Oropharyngeal pain [Unknown]
  - Abdominal tenderness [Unknown]
  - Night sweats [Unknown]
  - Gastrointestinal haemorrhage [Unknown]
  - Dyspnoea exertional [Unknown]
  - Pain in extremity [Unknown]
  - Palpitations [Unknown]
  - Insomnia [Unknown]
  - Limb injury [Unknown]
  - Axillary pain [Unknown]
  - Large intestine polyp [Unknown]
  - Spider vein [Unknown]
  - Epistaxis [Unknown]
  - Cough [Unknown]
  - Arthralgia [Not Recovered/Not Resolved]
  - Hyperhidrosis [Unknown]
  - Constipation [Unknown]
  - Pain [Unknown]
  - Rhinorrhoea [Unknown]
  - Fatigue [Not Recovered/Not Resolved]
  - Breast pain [Unknown]
  - Headache [Unknown]
